FAERS Safety Report 18589220 (Version 1)
Quarter: 2020Q4

REPORT INFORMATION
  Report Type: Spontaneous
  Country: ES (occurrence: ES)
  Receive Date: 20201208
  Receipt Date: 20201208
  Transmission Date: 20210114
  Serious: Yes (Other)
  Sender: FDA-Public Use
  Company Number: ES-TEVA-2020-ES-1855021

PATIENT
  Sex: Male

DRUGS (2)
  1. METILPREDNISOLONA (888A) [Concomitant]
     Active Substance: METHYLPREDNISOLONE
     Dates: start: 202008
  2. PREDNISONA (886A) [Suspect]
     Active Substance: PREDNISONE
     Route: 065
     Dates: start: 202008

REACTIONS (1)
  - Diabetic metabolic decompensation [Recovered/Resolved with Sequelae]

NARRATIVE: CASE EVENT DATE: 202008
